FAERS Safety Report 7631950-0 (Version None)
Quarter: 2011Q3

REPORT INFORMATION
  Report Type: 
  Country: None (occurrence: None)
  Receive Date: 20110725
  Receipt Date: 20110516
  Transmission Date: 20111222
  Serious: No
  Sender: FDA-Public Use
  Company Number: US-BRISTOL-MYERS SQUIBB COMPANY-15747801

PATIENT
  Age: 75 Year
  Sex: Male
  Weight: 84 kg

DRUGS (1)
  1. WARFARIN SODIUM [Suspect]
     Indication: CARDIAC FAILURE CONGESTIVE
     Dosage: FOR GREATER THAN 5 YEARS

REACTIONS (2)
  - DIARRHOEA [None]
  - RASH [None]
